FAERS Safety Report 4279418-6 (Version None)
Quarter: 2004Q1

REPORT INFORMATION
  Report Type: 
  Country: None (occurrence: None)
  Receive Date: 20040123
  Receipt Date: 20040114
  Transmission Date: 20041129
  Serious: Yes (Hospitalization)
  Sender: FDA-Public Use
  Company Number: 2003-02-2009

PATIENT
  Age: 52 Year
  Sex: Male

DRUGS (1)
  1. INTRON A [Suspect]
     Indication: MALIGNANT MELANOMA
     Dosage: 37 MU QD INTRAVENOUS
     Route: 042
     Dates: start: 20030210, end: 20030216

REACTIONS (1)
  - DRUG TOXICITY [None]
